FAERS Safety Report 19930652 (Version 1)
Quarter: 2021Q4

REPORT INFORMATION
  Report Type: Spontaneous
  Country: US (occurrence: US)
  Receive Date: 20211008
  Receipt Date: 20211008
  Transmission Date: 20220303
  Serious: Yes (Other)
  Sender: FDA-Public Use
  Company Number: US-SA-SAC20211005000612

PATIENT
  Age: 5 Year
  Sex: Male

DRUGS (1)
  1. CAPRELSA [Suspect]
     Active Substance: VANDETANIB
     Indication: Brain neoplasm malignant
     Dosage: 100 MG, QD
     Route: 048
     Dates: start: 20210902

REACTIONS (10)
  - Malignant neoplasm progression [Unknown]
  - Balance disorder [Unknown]
  - Feeling abnormal [Unknown]
  - Blood cholesterol increased [Unknown]
  - Blood phosphorus decreased [Unknown]
  - Lymphocyte count decreased [Unknown]
  - Body temperature increased [Unknown]
  - Fatigue [Unknown]
  - Asthenia [Unknown]
  - Off label use [Unknown]
